FAERS Safety Report 18362419 (Version 3)
Quarter: 2020Q4

REPORT INFORMATION
  Report Type: Spontaneous
  Country: IT (occurrence: IT)
  Receive Date: 20201008
  Receipt Date: 20201022
  Transmission Date: 20210114
  Serious: Yes (Death)
  Sender: FDA-Public Use
  Company Number: IT-MYLANLABS-2020M1084862

PATIENT
  Age: 77 Year
  Sex: Male
  Weight: 80 kg

DRUGS (15)
  1. SIMVASTATIN. [Suspect]
     Active Substance: SIMVASTATIN
     Dosage: 40 MILLIGRAM, QD
     Route: 048
     Dates: end: 20200713
  2. DIGOXIN. [Concomitant]
     Active Substance: DIGOXIN
     Indication: CARDIAC FAILURE
     Dosage: 0.13 MILLIGRAM
     Route: 048
     Dates: start: 20200710, end: 20200713
  3. ZYLORIC [Concomitant]
     Active Substance: ALLOPURINOL
     Dosage: 150 MILLIGRAM
  4. RIVAROXABAN [Concomitant]
     Active Substance: RIVAROXABAN
     Dosage: 15 MILLIGRAM
     Dates: start: 20200713
  5. BRONCOVALEAS                       /00139501/ [Concomitant]
     Active Substance: ALBUTEROL
     Dosage: UNK
  6. CARDIOASPIRIN [Concomitant]
     Active Substance: ASPIRIN
     Dosage: 100 MILLIGRAM
  7. QUARK [Concomitant]
     Active Substance: RAMIPRIL
     Dosage: 1.25 MILLIGRAM
     Dates: start: 20200713
  8. PRONTINAL [Concomitant]
     Active Substance: BECLOMETHASONE DIPROPIONATE
     Dosage: UNK
  9. PIPERACILLINA/TAZOBACTAM [Concomitant]
     Active Substance: PIPERACILLIN SODIUM\TAZOBACTAM SODIUM
     Dosage: UNK
     Dates: start: 20200704, end: 20200714
  10. OMNIC [Concomitant]
     Active Substance: TAMSULOSIN HYDROCHLORIDE
     Dosage: 0.4 MILLIGRAM
  11. LEVOFLOXACIN. [Suspect]
     Active Substance: LEVOFLOXACIN
     Indication: PNEUMONITIS
     Dosage: 500 MILLIGRAM, QD
     Route: 042
     Dates: start: 20200704, end: 20200712
  12. SIMVASTATIN. [Suspect]
     Active Substance: SIMVASTATIN
     Indication: MYOCARDIAL ISCHAEMIA
     Dosage: 40 MILLIGRAM, QD
     Route: 048
     Dates: end: 20200701
  13. ABASAGLAR [Concomitant]
     Active Substance: INSULIN GLARGINE
     Dosage: 6 INTERNATIONAL UNIT
  14. OMEPRAZOLE. [Concomitant]
     Active Substance: OMEPRAZOLE
     Dosage: 20 MILLIGRAM
  15. FLUIMUCIL [Concomitant]
     Active Substance: ACETYLCYSTEINE
     Dosage: 600 MILLIGRAM

REACTIONS (2)
  - Acute kidney injury [Fatal]
  - Rhabdomyolysis [Fatal]

NARRATIVE: CASE EVENT DATE: 20200713
